FAERS Safety Report 7076959-3 (Version None)
Quarter: 2010Q4

REPORT INFORMATION
  Report Type: 
  Country: None (occurrence: None)
  Receive Date: 20101101
  Receipt Date: 20101025
  Transmission Date: 20110411
  Serious: Yes (Hospitalization, Other)
  Sender: FDA-Public Use
  Company Number: GB-TEVA-226748ISR

PATIENT
  Sex: Male
  Weight: 78 kg

DRUGS (10)
  1. PREDNISOLONE [Suspect]
     Indication: PROSTATE CANCER
     Route: 048
     Dates: start: 20081027, end: 20090713
  2. PREDNISOLONE [Suspect]
     Route: 048
     Dates: start: 20090714, end: 20090923
  3. ABIRATERONE ACETATE [Suspect]
     Indication: PROSTATE CANCER
     Route: 048
     Dates: start: 20081027, end: 20090923
  4. PAMIDRONATE DISODIUM [Concomitant]
     Indication: BONE DENSITY DECREASED
     Route: 042
     Dates: start: 20091229
  5. CITALOPRAM HYDROBROMIDE [Concomitant]
     Indication: ANXIETY
     Route: 048
     Dates: start: 20060101
  6. BISOPROLOL [Concomitant]
     Indication: HYPERTENSION
     Route: 048
     Dates: start: 20050101
  7. PARACETAMOL [Concomitant]
     Indication: CANCER PAIN
     Route: 048
     Dates: start: 20080101
  8. PANADEINE CO [Concomitant]
     Route: 048
     Dates: start: 20081020
  9. MACROGOL [Concomitant]
     Indication: CONSTIPATION PROPHYLAXIS
     Route: 048
     Dates: start: 20081222
  10. TRAMADOL [Concomitant]
     Indication: CANCER PAIN
     Route: 048
     Dates: start: 20090209

REACTIONS (3)
  - HYPONATRAEMIA [None]
  - SEPSIS [None]
  - SPINAL CORD COMPRESSION [None]
